FAERS Safety Report 7938310-3 (Version None)
Quarter: 2011Q4

REPORT INFORMATION
  Report Type: 
  Country: None (occurrence: None)
  Receive Date: 20111123
  Receipt Date: 20110818
  Transmission Date: 20120403
  Serious: No
  Sender: FDA-Public Use
  Company Number: US-GLAXOSMITHKLINE-A0916358A

PATIENT
  Age: 65 Year
  Sex: Female
  Weight: 59.5 kg

DRUGS (4)
  1. ARZERRA [Suspect]
     Indication: CHRONIC LYMPHOCYTIC LEUKAEMIA
     Dosage: 300MG PER DAY
     Route: 042
     Dates: start: 20110225
  2. BENADRYL [Concomitant]
  3. ACETAMINOPHEN [Concomitant]
  4. KYTRIL [Concomitant]

REACTIONS (4)
  - NAUSEA [None]
  - HYPERHIDROSIS [None]
  - FLUSHING [None]
  - FEELING HOT [None]
